FAERS Safety Report 8830356 (Version 1)
Quarter: 2012Q4

REPORT INFORMATION
  Report Type: 
  Country: US (occurrence: US)
  Receive Date: 20121009
  Receipt Date: 20121009
  Transmission Date: 20130627
  Serious: Yes (Other)
  Sender: FDA-Public Use
  Company Number: US-PFIZER INC-2012245116

PATIENT

DRUGS (3)
  1. PREMARIN [Suspect]
     Dosage: UNK
  2. ALDACTONE [Suspect]
     Dosage: UNK
  3. PERCOCET [Suspect]
     Dosage: UNK

REACTIONS (8)
  - Chlamydial infection [Unknown]
  - Haemorrhage [Unknown]
  - Intervertebral disc protrusion [Unknown]
  - Depression [Unknown]
  - Haematoma [Unknown]
  - Skin discolouration [Unknown]
  - Scab [Unknown]
  - Infection [Unknown]
